FAERS Safety Report 19313395 (Version 1)
Quarter: 2021Q2

REPORT INFORMATION
  Report Type: Spontaneous
  Country: US (occurrence: US)
  Receive Date: 20210527
  Receipt Date: 20210527
  Transmission Date: 20210717
  Serious: Yes (Death)
  Sender: FDA-Public Use
  Company Number: US-AVEO ONCOLOGY-2021-AVEO-US003343

PATIENT

DRUGS (16)
  1. MAGNESIUM [Concomitant]
     Active Substance: MAGNESIUM
  2. OXYCODONE [Concomitant]
     Active Substance: OXYCODONE
  3. MULTIVITAMIN [Concomitant]
     Active Substance: VITAMINS
  4. CARVEDILOL. [Concomitant]
     Active Substance: CARVEDILOL
  5. MOVANTIK [Concomitant]
     Active Substance: NALOXEGOL OXALATE
  6. FENTANYL. [Concomitant]
     Active Substance: FENTANYL
  7. VITAMIN D [Concomitant]
     Active Substance: VITAMIN D NOS
  8. CELEBREX [Concomitant]
     Active Substance: CELECOXIB
  9. PHAZYME [Concomitant]
     Active Substance: DIMETHICONE 410
  10. FOTIVDA [Suspect]
     Active Substance: TIVOZANIB HYDROCHLORIDE
     Indication: RENAL CANCER
     Dosage: 1.34 MG, DAILY FOR 3 WEEKS ON 1 WEEK OFF
     Route: 048
  11. TRIAMCINOLONE [Concomitant]
     Active Substance: TRIAMCINOLONE
  12. FLOMAX [Concomitant]
     Active Substance: TAMSULOSIN HYDROCHLORIDE
  13. ONDANSETRON [Concomitant]
     Active Substance: ONDANSETRON
  14. HYDROXYZINE [Concomitant]
     Active Substance: HYDROXYZINE HYDROCHLORIDE
  15. LEVOTHYROXINE. [Concomitant]
     Active Substance: LEVOTHYROXINE
  16. XARELTO [Concomitant]
     Active Substance: RIVAROXABAN

REACTIONS (1)
  - Disease progression [Fatal]

NARRATIVE: CASE EVENT DATE: 20210513
